FAERS Safety Report 5221703-5 (Version None)
Quarter: 2007Q1

REPORT INFORMATION
  Report Type: 
  Country: None (occurrence: None)
  Receive Date: 20070129
  Receipt Date: 20070126
  Transmission Date: 20070707
  Serious: Yes (Other)
  Sender: FDA-Public Use
  Company Number: US-SHR-US-2006-028355

PATIENT
  Age: 19 Year
  Sex: Female
  Weight: 79 kg

DRUGS (1)
  1. MIRENA [Suspect]
     Indication: CONTRACEPTION
     Dosage: 20 A?G/DAY, CONT
     Route: 015
     Dates: start: 20010701, end: 20031001

REACTIONS (9)
  - ABDOMINAL PAIN LOWER [None]
  - AMENORRHOEA [None]
  - DYSPLASIA [None]
  - ENDOMETRIOSIS [None]
  - GASTROINTESTINAL PAIN [None]
  - MENSTRUATION IRREGULAR [None]
  - PELVIC INFLAMMATORY DISEASE [None]
  - PELVIC PAIN [None]
  - URINARY TRACT INFECTION [None]
